FAERS Safety Report 9964020 (Version 3)
Quarter: 2014Q2

REPORT INFORMATION
  Report Type: Report from Study
  Country: BR (occurrence: BR)
  Receive Date: 20140305
  Receipt Date: 20140408
  Transmission Date: 20141212
  Serious: Yes (Other)
  Sender: FDA-Public Use
  Company Number: BR-GILEAD-2014-0095840

PATIENT
  Age: 23 Year
  Sex: Female

DRUGS (5)
  1. EMTRICITABINE/TENOFOVIR DISOPROXIL FUMARATE [Suspect]
     Indication: HIV INFECTION
     Dosage: 1 DF, QD
     Route: 048
     Dates: start: 20131127, end: 20131127
  2. LAMIVUDINE + ZIDOVUDINE [Suspect]
     Indication: HIV INFECTION
     Dosage: 2 DF, QD
     Route: 048
     Dates: start: 20120702, end: 20131126
  3. LOPINAVIR + RITONAVIR [Suspect]
     Indication: HIV INFECTION
     Dosage: 4 DF, QD
     Route: 048
     Dates: start: 20120702, end: 20131126
  4. ATAZANAVIR SULFATE [Suspect]
     Indication: HIV INFECTION
     Dosage: 300 MG, QD
     Route: 048
     Dates: start: 20131127
  5. RITONAVIR [Suspect]
     Indication: HIV INFECTION
     Dosage: 100 MG, QD
     Route: 048
     Dates: start: 20131127

REACTIONS (1)
  - Abortion spontaneous [Recovered/Resolved]
